FAERS Safety Report 24968541 (Version 2)
Quarter: 2025Q1

REPORT INFORMATION
  Report Type: Report from Study
  Country: US (occurrence: US)
  Receive Date: 20250214
  Receipt Date: 20250313
  Transmission Date: 20250408
  Serious: Yes (Other)
  Sender: TAIHO ONCOLOGY INC
  Company Number: US-TAIHOP-2025-000738

PATIENT
  Age: 77 Year
  Sex: Male
  Weight: 87.81 kg

DRUGS (2)
  1. INQOVI [Suspect]
     Active Substance: CEDAZURIDINE\DECITABINE
     Indication: Acute myeloid leukaemia
     Dosage: CYCLE 1 STARTED ON 13/JAN/2025, CURRENT CYCLE UNKNOWN
     Route: 048
     Dates: start: 20250113
  2. VENCLEXTA [Concomitant]
     Active Substance: VENETOCLAX
     Indication: Acute myeloid leukaemia
     Dates: start: 20250113

REACTIONS (11)
  - Decreased appetite [Unknown]
  - Red blood cell count decreased [Unknown]
  - Dizziness [Unknown]
  - Neck pain [Unknown]
  - Asthenia [Unknown]
  - Fatigue [Unknown]
  - Pain [Unknown]
  - Bone pain [Unknown]
  - Constipation [Unknown]
  - Nausea [Unknown]
  - Product use in unapproved indication [Unknown]
